FAERS Safety Report 10663801 (Version 4)
Quarter: 2015Q3

REPORT INFORMATION
  Report Type: Spontaneous
  Country: US (occurrence: US)
  Receive Date: 20141219
  Receipt Date: 20150708
  Transmission Date: 20151125
  Serious: Yes (Other)
  Sender: FDA-Public Use
  Company Number: US-ASTRAZENECA-2014SE94737

PATIENT
  Age: 70 Year
  Sex: Female

DRUGS (75)
  1. NEXIUM [Suspect]
     Active Substance: ESOMEPRAZOLE MAGNESIUM
     Indication: HIATUS HERNIA
     Dosage: WALMART 40 MG DAILY
     Route: 048
     Dates: start: 2004, end: 20141205
  2. LISINOPRIL. [Suspect]
     Active Substance: LISINOPRIL
     Indication: BLOOD PRESSURE ABNORMAL
     Route: 048
  3. MORPHINE [Suspect]
     Active Substance: MORPHINE
     Dosage: NON AZ PRODUCT
     Route: 065
  4. BENADRYL [Suspect]
     Active Substance: DIPHENHYDRAMINE HYDROCHLORIDE
     Route: 065
  5. MOST BLOOD PRESSURE MEDICATIONS [Suspect]
     Active Substance: UNSPECIFIED INGREDIENT
     Route: 065
  6. A FORM OF ESTROGEN [Suspect]
     Active Substance: UNSPECIFIED INGREDIENT
     Route: 065
  7. L-LYSIENNE [Concomitant]
     Indication: BONE DISORDER
     Dates: start: 2002
  8. UBIQUINOL [Concomitant]
     Indication: GENERAL PHYSICAL HEALTH DETERIORATION
     Dates: start: 2009
  9. VITAMIN B1 [Concomitant]
     Active Substance: THIAMINE HYDROCHLORIDE
     Indication: NEUROPATHY PERIPHERAL
     Dates: start: 2004
  10. VITAMIN B COMPLEX [Concomitant]
     Active Substance: CYANOCOBALAMIN\DEXPANTHENOL\NIACINAMIDE\PYRIDOXINE HYDROCHLORIDE\RIBOFLAVIN 5^-PHOSPHATE SODIUM\THIAMINE HYDROCHLORIDE\VITAMIN B COMPLEX
     Indication: GENERAL PHYSICAL HEALTH DETERIORATION
     Dates: start: 2002
  11. VITAMIN D3 [Concomitant]
     Active Substance: CHOLECALCIFEROL
     Indication: GENERAL PHYSICAL HEALTH DETERIORATION
     Dates: start: 2002
  12. ZINC [Concomitant]
     Active Substance: ZINC\ZINC CHLORIDE
     Indication: GENERAL PHYSICAL HEALTH DETERIORATION
     Dates: start: 2009
  13. MAGNESIUM [Concomitant]
     Active Substance: MAGNESIUM
     Indication: GENERAL PHYSICAL HEALTH DETERIORATION
     Dates: start: 1998
  14. NEXIUM [Suspect]
     Active Substance: ESOMEPRAZOLE MAGNESIUM
     Indication: HIATUS HERNIA
     Route: 048
  15. PENICILLIN [Suspect]
     Active Substance: PENICILLIN
     Route: 065
  16. ZANTAC [Suspect]
     Active Substance: RANITIDINE HYDROCHLORIDE
     Route: 065
  17. QUERCETIN [Concomitant]
     Active Substance: QUERCETIN
     Indication: INFLAMMATION
     Dates: start: 2009
  18. BERDINE HCL [Concomitant]
     Indication: DIABETES MELLITUS
  19. PROBIOTIC [Concomitant]
     Active Substance: PROBIOTICS NOS
     Indication: GENERAL PHYSICAL HEALTH DETERIORATION
     Dosage: 20 BILLION CFU DAILY
     Dates: start: 1999
  20. PROBIOTIC [Concomitant]
     Active Substance: PROBIOTICS NOS
     Indication: BACTERIAL INFECTION
     Dosage: 20 BILLION CFU DAILY
     Dates: start: 1999
  21. DGL [Concomitant]
     Indication: GASTRIC DISORDER
     Dosage: 750 MG TABLETS 1-2 PER DAY
     Dates: start: 2010
  22. EXCEDRIN [Concomitant]
     Active Substance: ACETAMINOPHEN\ASPIRIN\CAFFEINE
     Indication: PAIN
  23. POTASSIUM [Concomitant]
     Active Substance: POTASSIUM
     Indication: GENERAL PHYSICAL HEALTH DETERIORATION
     Dates: start: 2002
  24. NOVOLIN N [Concomitant]
     Active Substance: INSULIN HUMAN
     Indication: DIABETES MELLITUS
     Dosage: 15-24 UNITS, SLIDING SCALE, 1-2 TIMES DAILY
  25. HYDROCHLOROTHIAZIDE. [Concomitant]
     Active Substance: HYDROCHLOROTHIAZIDE
  26. LANTUS [Suspect]
     Active Substance: INSULIN GLARGINE
     Route: 065
  27. ACIPHEX [Suspect]
     Active Substance: RABEPRAZOLE SODIUM
     Route: 065
  28. L-LYSIENNE [Concomitant]
     Indication: HERPES VIRUS INFECTION
     Dates: start: 2002
  29. PERLUXAN (HOPS) [Concomitant]
     Indication: BONE DISORDER
     Dates: start: 2009
  30. BIOTIN [Concomitant]
     Active Substance: BIOTIN
     Indication: HAIR DISORDER
     Dates: start: 2012
  31. INSULIN [Concomitant]
     Active Substance: INSULIN NOS
  32. NEXIUM [Suspect]
     Active Substance: ESOMEPRAZOLE MAGNESIUM
     Indication: GASTROOESOPHAGEAL REFLUX DISEASE
     Dosage: WALMART 40 MG DAILY
     Route: 048
     Dates: start: 2004, end: 20141205
  33. NEXIUM [Suspect]
     Active Substance: ESOMEPRAZOLE MAGNESIUM
     Indication: HIATUS HERNIA
     Route: 048
     Dates: start: 20141205
  34. GLYBURIDE. [Suspect]
     Active Substance: GLYBURIDE
     Route: 065
  35. LEVAQUIN [Suspect]
     Active Substance: LEVOFLOXACIN
     Route: 065
  36. QUERCETIN [Concomitant]
     Active Substance: QUERCETIN
     Indication: MULTIPLE ALLERGIES
     Dates: start: 2009
  37. NAC [Concomitant]
     Indication: LIVER DISORDER
     Dates: start: 2009
  38. GREEN COFFEE [Concomitant]
     Indication: DIABETES MELLITUS
  39. BLADDER WRACK [Concomitant]
     Indication: IODINE DEFICIENCY
     Dates: start: 2009
  40. BIOTIN [Concomitant]
     Active Substance: BIOTIN
     Indication: DIABETES MELLITUS
     Dates: start: 2012
  41. GINGER ROOT [Concomitant]
     Indication: ARTHRITIS
     Dates: start: 2012
  42. NEXIUM [Suspect]
     Active Substance: ESOMEPRAZOLE MAGNESIUM
     Indication: GASTROOESOPHAGEAL REFLUX DISEASE
     Route: 048
     Dates: start: 20141205
  43. PRILOSEC [Suspect]
     Active Substance: OMEPRAZOLE MAGNESIUM
     Indication: GASTRIC DISORDER
     Route: 048
     Dates: start: 2002
  44. PREVACID [Suspect]
     Active Substance: LANSOPRAZOLE
     Route: 065
  45. ZELNORM [Suspect]
     Active Substance: TEGASEROD MALEATE
     Route: 065
  46. BROMELAIN [Concomitant]
     Active Substance: BROMELAINS
     Indication: MULTIPLE ALLERGIES
     Dates: start: 2012
  47. L CARNOSINE [Concomitant]
     Indication: NERVOUS SYSTEM DISORDER
     Dates: start: 2012
  48. NAC [Concomitant]
     Indication: DIABETES MELLITUS
     Dates: start: 2009
  49. PANTETHINE [Concomitant]
     Active Substance: PANTETHINE
     Indication: BLOOD CHOLESTEROL ABNORMAL
     Dates: start: 2009
  50. ACETAMINOPHEN. [Concomitant]
     Active Substance: ACETAMINOPHEN
     Indication: PAIN
  51. VITAMIN C [Concomitant]
     Active Substance: ASCORBIC ACID
     Indication: GENERAL PHYSICAL HEALTH DETERIORATION
     Dates: start: 2002
  52. VITAMIN K [Concomitant]
     Active Substance: PHYTONADIONE
     Indication: GENERAL PHYSICAL HEALTH DETERIORATION
     Dates: start: 2002
  53. NEXIUM [Suspect]
     Active Substance: ESOMEPRAZOLE MAGNESIUM
     Indication: HIATUS HERNIA
     Route: 048
  54. CELEBREX [Suspect]
     Active Substance: CELECOXIB
     Route: 065
  55. VITAMIN B12 [Suspect]
     Active Substance: CYANOCOBALAMIN
     Indication: GENERAL PHYSICAL HEALTH DETERIORATION
     Route: 065
     Dates: start: 2002
  56. MSM [Suspect]
     Active Substance: DIMETHYL SULFONE
     Route: 065
  57. CITRATAF [Suspect]
     Active Substance: TIQUIZIUM BROMIDE
     Route: 065
  58. LUTEIN ZEAXANTHIN [Concomitant]
     Indication: EYE DISORDER
     Dates: start: 2014
  59. FISH OIL [Concomitant]
     Active Substance: FISH OIL
     Indication: INFLAMMATION
     Dates: start: 2014
  60. NEXIUM [Suspect]
     Active Substance: ESOMEPRAZOLE MAGNESIUM
     Indication: HIATUS HERNIA
     Route: 048
  61. NEXIUM [Suspect]
     Active Substance: ESOMEPRAZOLE MAGNESIUM
     Indication: GASTROOESOPHAGEAL REFLUX DISEASE
     Route: 048
  62. NIFEDIPINE. [Suspect]
     Active Substance: NIFEDIPINE
     Dosage: NON AZ PRODUCT
     Route: 065
  63. IBUPROFEN. [Suspect]
     Active Substance: IBUPROFEN
     Route: 065
  64. PEPCID [Suspect]
     Active Substance: FAMOTIDINE
     Route: 065
  65. CODEINE [Suspect]
     Active Substance: CODEINE
     Route: 065
  66. COZAAR [Suspect]
     Active Substance: LOSARTAN POTASSIUM
     Route: 065
  67. FLAXSEED [Concomitant]
     Active Substance: FLAX SEED
     Indication: ILL-DEFINED DISORDER
  68. TUMS [Concomitant]
     Active Substance: CALCIUM CARBONATE
     Indication: GASTRIC DISORDER
     Dates: start: 2014
  69. TURMIC [Concomitant]
     Indication: GENERAL PHYSICAL HEALTH DETERIORATION
     Dates: start: 2009
  70. NEXIUM [Suspect]
     Active Substance: ESOMEPRAZOLE MAGNESIUM
     Indication: GASTROOESOPHAGEAL REFLUX DISEASE
     Route: 048
  71. NEXIUM [Suspect]
     Active Substance: ESOMEPRAZOLE MAGNESIUM
     Indication: GASTROOESOPHAGEAL REFLUX DISEASE
     Route: 048
  72. METFORMIN [Suspect]
     Active Substance: METFORMIN HYDROCHLORIDE
     Dosage: NON AZ PRODUCT
     Route: 065
  73. HUMALOG [Suspect]
     Active Substance: INSULIN LISPRO
     Route: 065
  74. PERCOCET [Suspect]
     Active Substance: ACETAMINOPHEN\OXYCODONE HYDROCHLORIDE
     Route: 065
  75. CHROMIUM [Concomitant]
     Active Substance: CHROMIC CHLORIDE\CHROMIUM
     Indication: DIABETES MELLITUS

REACTIONS (19)
  - Femur fracture [Unknown]
  - Arthritis [Unknown]
  - Intentional product misuse [Unknown]
  - Abdominal discomfort [Recovered/Resolved]
  - Barrett^s oesophagus [Unknown]
  - Micturition urgency [Unknown]
  - Product physical issue [Unknown]
  - Bladder disorder [Recovered/Resolved]
  - Blood zinc decreased [Unknown]
  - Condition aggravated [Unknown]
  - Cystitis [Unknown]
  - Blood magnesium decreased [Unknown]
  - Adverse drug reaction [Unknown]
  - Drug ineffective [Unknown]
  - Fatigue [Unknown]
  - Drug hypersensitivity [Unknown]
  - Sleep disorder due to a general medical condition [Unknown]
  - Rash macular [Unknown]
  - Diabetes mellitus [Unknown]

NARRATIVE: CASE EVENT DATE: 2002
